FAERS Safety Report 12876323 (Version 10)
Quarter: 2019Q1

REPORT INFORMATION
  Report Type: Spontaneous
  Country: JP (occurrence: JP)
  Receive Date: 20161024
  Receipt Date: 20190301
  Transmission Date: 20190417
  Serious: Yes (Hospitalization, Other)
  Sender: FDA-Public Use
  Company Number: JP-FERRINGPH-2016FE05601

PATIENT

DRUGS (6)
  1. MINIRINMELT [Suspect]
     Active Substance: DESMOPRESSIN ACETATE
     Indication: DIABETES INSIPIDUS
     Dosage: 60 ?G, 1 TIME DAILY
     Route: 048
     Dates: start: 201508, end: 201610
  2. ROHYPNOL [Concomitant]
     Active Substance: FLUNITRAZEPAM
     Indication: INSOMNIA
     Route: 048
  3. MINIRINMELT [Suspect]
     Active Substance: DESMOPRESSIN ACETATE
     Dosage: 60 ?G, 2 TIMES DAILY
     Route: 048
  4. MINIRINMELT [Suspect]
     Active Substance: DESMOPRESSIN ACETATE
     Dosage: 60 ?G, DAILY
  5. MINIRINMELT [Suspect]
     Active Substance: DESMOPRESSIN ACETATE
     Dosage: 60 ?G, 2 TIMES DAILY
     Route: 048
     Dates: start: 200401
  6. DESMOPRESSIN KYOWA [Suspect]
     Active Substance: DESMOPRESSIN
     Indication: DIABETES INSIPIDUS
     Dosage: UNK
     Route: 045
     Dates: start: 201506, end: 201508

REACTIONS (29)
  - Photophobia [Unknown]
  - Pruritus generalised [Unknown]
  - Somnolence [Unknown]
  - Vomiting [Unknown]
  - Mental disorder [Unknown]
  - Oral discomfort [Recovered/Resolved]
  - Mouth swelling [Unknown]
  - Urticaria [Recovered/Resolved]
  - Oedema [Unknown]
  - Water intoxication [Unknown]
  - Hyperacusis [Recovered/Resolved]
  - Rash [Recovering/Resolving]
  - Glycosylated haemoglobin increased [Unknown]
  - Blood pressure increased [Unknown]
  - Insomnia [Recovered/Resolved]
  - Constipation [Unknown]
  - Nausea [Unknown]
  - Affect lability [Unknown]
  - Visual impairment [Recovered/Resolved]
  - Lethargy [Unknown]
  - Salivary hypersecretion [Recovered/Resolved]
  - Toothache [Unknown]
  - Hyponatraemia [Recovered/Resolved]
  - Loss of consciousness [Unknown]
  - Dyspnoea [Recovered/Resolved]
  - Drug effect variable [Recovered/Resolved]
  - Blood glucose increased [Unknown]
  - Speech disorder [Unknown]
  - Tooth abscess [Unknown]

NARRATIVE: CASE EVENT DATE: 201508
